FAERS Safety Report 5811364-6 (Version None)
Quarter: 2008Q3

REPORT INFORMATION
  Report Type: 
  Country: None (occurrence: None)
  Receive Date: 20080716
  Receipt Date: 20080703
  Transmission Date: 20090109
  Serious: Yes (Other)
  Sender: FDA-Public Use
  Company Number: US-KINGPHARMUSA00001-K200800798

PATIENT

DRUGS (1)
  1. AVINZA [Suspect]

REACTIONS (1)
  - RENAL FAILURE [None]
